FAERS Safety Report 6167719-6 (Version None)
Quarter: 2009Q2

REPORT INFORMATION
  Report Type: 
  Country: None (occurrence: None)
  Receive Date: 20090424
  Receipt Date: 20090424
  Transmission Date: 20091009
  Serious: Yes (Hospitalization, Other)
  Sender: FDA-Public Use
  Company Number: US-ABBOTT-08P-163-0451176-00

PATIENT
  Sex: Female
  Weight: 44 kg

DRUGS (10)
  1. LUPRON DEPOT [Suspect]
     Indication: PELVIC PAIN
     Route: 030
     Dates: start: 20080305
  2. LUPRON DEPOT [Suspect]
     Dates: start: 20070101
  3. PROZAC [Concomitant]
     Indication: DEPRESSION
     Route: 048
     Dates: start: 20010101
  4. ALBUTEROL [Concomitant]
     Indication: ASTHMA
     Route: 055
  5. ATIVAN [Concomitant]
     Indication: ANXIETY
     Route: 048
  6. LOVASTATIN [Concomitant]
     Indication: HYPERCHOLESTEROLAEMIA
     Route: 048
  7. DEPAKOTE [Concomitant]
     Indication: BIPOLAR DISORDER
     Route: 048
  8. UNSPECIFIED MULTIVITAMINS [Concomitant]
     Indication: VITAMIN SUPPLEMENTATION
     Route: 048
  9. FLUOXETINE [Concomitant]
     Indication: DRUG USE FOR UNKNOWN INDICATION
  10. OLANZAPINE [Concomitant]
     Indication: DRUG USE FOR UNKNOWN INDICATION

REACTIONS (4)
  - BLEPHAROSPASM [None]
  - CONVERSION DISORDER [None]
  - DYSARTHRIA [None]
  - HYPOAESTHESIA [None]
